FAERS Safety Report 23055999 (Version 3)
Quarter: 2024Q1

REPORT INFORMATION
  Report Type: Spontaneous
  Country: US (occurrence: US)
  Receive Date: 20231011
  Receipt Date: 20240115
  Transmission Date: 20240409
  Serious: Yes (Hospitalization)
  Sender: FDA-Public Use
  Company Number: US-BRISTOL-MYERS SQUIBB COMPANY-2023-144054

PATIENT
  Age: 79 Year
  Sex: Female
  Weight: 76.66 kg

DRUGS (2)
  1. POMALYST [Suspect]
     Active Substance: POMALIDOMIDE
     Indication: Plasma cell myeloma
     Dosage: FREQUENCY: 21D OF 28 DAYS, 3WKSON,1OFF (3 WEEKS ON, 1 WEEK OFF)
     Route: 048
  2. POMALYST [Suspect]
     Active Substance: POMALIDOMIDE
     Dosage: FREQUENCY: DAILY FOR 21DAYS
     Route: 048

REACTIONS (3)
  - Hypotension [Recovered/Resolved]
  - Product supply issue [Unknown]
  - Product prescribing issue [Unknown]
